FAERS Safety Report 15802094 (Version 1)
Quarter: 2019Q1

REPORT INFORMATION
  Report Type: Spontaneous
  Country: US (occurrence: US)
  Receive Date: 20190107
  Receipt Date: 20190107
  Transmission Date: 20190417
  Serious: No
  Sender: FDA-Public Use
  Company Number: None

PATIENT

DRUGS (2)
  1. FLUOROURACIL CREAM [Suspect]
     Active Substance: FLUOROURACIL
     Route: 061
  2. HYDROCORTISONE. [Suspect]
     Active Substance: HYDROCORTISONE
     Route: 061

REACTIONS (5)
  - Product dispensing error [None]
  - Feeling abnormal [None]
  - Wrong product administered [None]
  - Haemorrhoids [None]
  - Condition aggravated [None]
